FAERS Safety Report 4409572-4 (Version None)
Quarter: 2004Q3

REPORT INFORMATION
  Report Type: 
  Country: None (occurrence: None)
  Receive Date: 20040727
  Receipt Date: 20040727
  Transmission Date: 20050211
  Serious: Yes (Hospitalization)
  Sender: FDA-Public Use
  Company Number: None

PATIENT
  Age: 73 Year
  Sex: Male
  Weight: 72.4 kg

DRUGS (9)
  1. CISPLATIN [Suspect]
     Indication: SQUAMOUS CELL CARCINOMA
     Dosage: 100 MG/M2}DAY 1 DAY 22 DAY 23
     Dates: start: 20040512, end: 20040628
  2. EXTERNAL RADIATION [Suspect]
     Indication: SQUAMOUS CELL CARCINOMA
     Dosage: 2.0 GY DAILY FOR 7 WEEKS
     Dates: start: 20040512, end: 20040716
  3. REMERON [Concomitant]
  4. BACTRIM [Concomitant]
  5. DOCUSATE [Concomitant]
  6. FLOMAX [Concomitant]
  7. XANAX [Concomitant]
  8. ROXICODONE [Concomitant]
  9. XANAX [Concomitant]

REACTIONS (4)
  - DEHYDRATION [None]
  - LOSS OF CONSCIOUSNESS [None]
  - MENTAL STATUS CHANGES [None]
  - POST PROCEDURAL VOMITING [None]
